FAERS Safety Report 7499292-4 (Version None)
Quarter: 2011Q2

REPORT INFORMATION
  Report Type: 
  Country: None (occurrence: None)
  Receive Date: 20110524
  Receipt Date: 20110502
  Transmission Date: 20111010
  Serious: Yes (Hospitalization)
  Sender: FDA-Public Use
  Company Number: SE-SANOFI-AVENTIS-2011SA027376

PATIENT
  Age: 72 Year
  Sex: Female

DRUGS (1)
  1. MULTAQ [Suspect]
     Indication: ATRIAL FIBRILLATION
     Route: 065
     Dates: start: 20100111

REACTIONS (5)
  - CHOLECYSTITIS [None]
  - NAUSEA [None]
  - ABDOMINAL PAIN [None]
  - VOMITING [None]
  - HEPATIC ENZYME INCREASED [None]
